FAERS Safety Report 5296318-3 (Version None)
Quarter: 2007Q2

REPORT INFORMATION
  Report Type: 
  Country: None (occurrence: None)
  Receive Date: 20070413
  Receipt Date: 20070410
  Transmission Date: 20071010
  Serious: Yes (Life-Threatening, Other)
  Sender: FDA-Public Use
  Company Number: GB-ELI_LILLY_AND_COMPANY-GB200704001924

PATIENT
  Age: 61 Year
  Sex: Female
  Weight: 60 kg

DRUGS (7)
  1. ZYPREXA [Suspect]
     Indication: PSYCHOTIC DISORDER
     Dosage: 20 MG, DAILY (1/D)
     Route: 048
     Dates: start: 20060620, end: 20060816
  2. MIRTAZAPINE [Concomitant]
     Indication: DEPRESSION
     Dosage: 45 MG, DAILY (1/D)
     Route: 048
     Dates: start: 20060511, end: 20060811
  3. ASPIRIN [Concomitant]
     Indication: CARDIOVASCULAR EVENT PROPHYLAXIS
     Dosage: 75 MG, DAILY (1/D)
     Route: 048
  4. QUETIAPINE FUMARATE [Concomitant]
     Indication: PSYCHOTIC DISORDER
     Dosage: 600 MG, DAILY (1/D)
     Route: 048
     Dates: start: 20060410, end: 20060704
  5. RISPERDAL [Concomitant]
     Indication: PSYCHOTIC DISORDER
     Dosage: 2 MG, DAILY (1/D)
     Route: 048
     Dates: start: 20051201, end: 20060415
  6. SIMVASTATIN [Concomitant]
     Indication: BLOOD CHOLESTEROL INCREASED
     Dosage: 20 MG, DAILY (1/D)
     Route: 048
  7. VENLAFAXINE HCL [Concomitant]
     Indication: DEPRESSION
     Dosage: 225 MG, DAILY (1/D)
     Route: 048
     Dates: start: 20051201, end: 20060602

REACTIONS (2)
  - NEUTROPENIA [None]
  - WHITE BLOOD CELL COUNT DECREASED [None]
